FAERS Safety Report 8234484-8 (Version None)
Quarter: 2012Q1

REPORT INFORMATION
  Report Type: 
  Country: None (occurrence: None)
  Receive Date: 20120321
  Receipt Date: 20120307
  Transmission Date: 20120608
  Serious: Yes (Death, Hospitalization, Other)
  Sender: FDA-Public Use
  Company Number: 2009AL002608

PATIENT
  Sex: Male
  Weight: 104.3273 kg

DRUGS (12)
  1. DIGOXIN [Suspect]
     Indication: PRODUCT USED FOR UNKNOWN INDICATION
     Dosage: 0.25 MG;QD;PO
     Route: 048
     Dates: start: 20060802, end: 20070917
  2. LEXAPRO [Concomitant]
  3. HYDROCODONE BITARTRATE [Concomitant]
  4. XANAX [Concomitant]
  5. OXYCODONE HCL [Concomitant]
  6. HUMULIN 70/30 [Concomitant]
  7. ENALAPRIL [Concomitant]
  8. PREDNISONE TAB [Concomitant]
  9. WELLBUTRIN SR [Concomitant]
  10. SOMA [Concomitant]
  11. NICOTINE [Concomitant]
  12. DOXEPIN HCL [Concomitant]

REACTIONS (21)
  - ALANINE AMINOTRANSFERASE INCREASED [None]
  - MYOCARDIAL INFARCTION [None]
  - MYOCARDIAL ISCHAEMIA [None]
  - ASTHENIA [None]
  - CARDIOMEGALY [None]
  - SURGERY [None]
  - VENTRICULAR TACHYCARDIA [None]
  - INJURY [None]
  - PRESYNCOPE [None]
  - ECONOMIC PROBLEM [None]
  - CAROTID ARTERY STENOSIS [None]
  - DIZZINESS [None]
  - BRAIN NATRIURETIC PEPTIDE INCREASED [None]
  - CELLULITIS [None]
  - DIABETES MELLITUS INADEQUATE CONTROL [None]
  - ISCHAEMIC CARDIOMYOPATHY [None]
  - FATIGUE [None]
  - HYPERTENSION [None]
  - BRONCHITIS [None]
  - HYPOAESTHESIA ORAL [None]
  - MUSCLE SPASMS [None]
